FAERS Safety Report 20750222 (Version 1)
Quarter: 2022Q2

REPORT INFORMATION
  Report Type: Spontaneous
  Country: CN (occurrence: None)
  Receive Date: 20220426
  Receipt Date: 20220426
  Transmission Date: 20220720
  Serious: Yes (Other)
  Sender: FDA-Public Use
  Company Number: 2022A159633

PATIENT
  Age: 30126 Day
  Sex: Male
  Weight: 60 kg

DRUGS (4)
  1. DURVALUMAB [Suspect]
     Active Substance: DURVALUMAB
     Indication: Neoplasm malignant
     Route: 042
     Dates: start: 20210822
  2. DURVALUMAB [Suspect]
     Active Substance: DURVALUMAB
     Indication: Intravesical immunotherapy
     Route: 042
     Dates: start: 20210822
  3. DURVALUMAB [Suspect]
     Active Substance: DURVALUMAB
     Indication: Neoplasm malignant
     Route: 042
     Dates: start: 20220316, end: 20220316
  4. DURVALUMAB [Suspect]
     Active Substance: DURVALUMAB
     Indication: Intravesical immunotherapy
     Route: 042
     Dates: start: 20220316, end: 20220316

REACTIONS (2)
  - Myocardial injury [Unknown]
  - Lipids increased [Unknown]

NARRATIVE: CASE EVENT DATE: 20220413
